FAERS Safety Report 4867533-5 (Version None)
Quarter: 2005Q4

REPORT INFORMATION
  Report Type: 
  Country: None (occurrence: None)
  Receive Date: 20051227
  Receipt Date: 20051227
  Transmission Date: 20060501
  Serious: Yes (Other)
  Sender: FDA-Public Use
  Company Number: None

PATIENT
  Age: 24 Year
  Sex: Female
  Weight: 45.3597 kg

DRUGS (2)
  1. LUPRON DEPOT [Suspect]
     Indication: ENDOMETRIOSIS
     Dosage: 1 MONTH ADULT DOSE 4 TIMES IM
     Route: 030
     Dates: start: 20020120, end: 20020420
  2. NORETHINDRONE ACETATE [Concomitant]

REACTIONS (15)
  - AMNESIA [None]
  - ARTHRALGIA [None]
  - DIZZINESS [None]
  - DYSPAREUNIA [None]
  - FATIGUE [None]
  - FIBROMYALGIA [None]
  - HEADACHE [None]
  - HOT FLUSH [None]
  - MEMORY IMPAIRMENT [None]
  - NAUSEA [None]
  - NIGHT SWEATS [None]
  - TEMPOROMANDIBULAR JOINT SYNDROME [None]
  - TREMOR [None]
  - VULVOVAGINAL DRYNESS [None]
  - WEIGHT DECREASED [None]
